FAERS Safety Report 13520739 (Version 1)
Quarter: 2017Q2

REPORT INFORMATION
  Report Type: Spontaneous
  Country: US (occurrence: US)
  Receive Date: 20170508
  Receipt Date: 20170508
  Transmission Date: 20170830
  Serious: No
  Sender: FDA-Public Use
  Company Number: US-TEVA-697922USA

PATIENT
  Sex: Male

DRUGS (1)
  1. EPOPROSTENOL. [Suspect]
     Active Substance: EPOPROSTENOL
     Indication: PULMONARY HYPERTENSION
     Dosage: 696114ISR
     Route: 042
     Dates: start: 20150707

REACTIONS (3)
  - Musculoskeletal pain [Unknown]
  - Musculoskeletal stiffness [Unknown]
  - Headache [Unknown]
